FAERS Safety Report 24268548 (Version 1)
Quarter: 2024Q3

REPORT INFORMATION
  Report Type: Spontaneous
  Country: FR (occurrence: FR)
  Receive Date: 20240830
  Receipt Date: 20240830
  Transmission Date: 20241017
  Serious: Yes (Hospitalization)
  Sender: TEVA
  Company Number: None

PATIENT
  Age: 93 Year
  Sex: Female
  Weight: 97 kg

DRUGS (5)
  1. EBASTINE [Suspect]
     Active Substance: EBASTINE
     Indication: Product used for unknown indication
     Route: 048
     Dates: start: 20240430, end: 20240506
  2. IXPRIM [Suspect]
     Active Substance: ACETAMINOPHEN\TRAMADOL HYDROCHLORIDE
     Indication: Product used for unknown indication
     Dosage: 37.5 MG/325 MG, 1 TO 4 TABLETS PER DAY IF NECESSARY
     Route: 048
     Dates: start: 20240430, end: 20240506
  3. HYDROXYZINE [Suspect]
     Active Substance: HYDROXYZINE HYDROCHLORIDE
     Indication: Product used for unknown indication
     Dosage: HYDROXYZINE HYDROCHLORIDE
     Route: 048
     Dates: start: 20240430, end: 20240507
  4. RIVOTRIL [Suspect]
     Active Substance: CLONAZEPAM
     Indication: Trigeminal neuralgia
     Dosage: QUADRA-SCORED TABLET
     Route: 048
     Dates: end: 20240116
  5. RIVOTRIL [Suspect]
     Active Substance: CLONAZEPAM
     Indication: Trigeminal neuralgia
     Dosage: QUADRA-SCORED TABLET
     Route: 048
     Dates: start: 20240116, end: 20240506

REACTIONS (2)
  - Hallucination [Recovered/Resolved]
  - Fall [Recovered/Resolved]

NARRATIVE: CASE EVENT DATE: 20240506
